FAERS Safety Report 9555526 (Version 3)
Quarter: 2015Q2

REPORT INFORMATION
  Report Type: Spontaneous
  Country: US (occurrence: US)
  Receive Date: 20130926
  Receipt Date: 20150524
  Transmission Date: 20150821
  Serious: No
  Sender: FDA-Public Use
  Company Number: US-JNJFOC-20130914012

PATIENT
  Sex: Male
  Weight: 72.58 kg

DRUGS (5)
  1. DURAGESIC [Suspect]
     Active Substance: FENTANYL
     Indication: PROCEDURAL PAIN
     Route: 062
  2. DURAGESIC [Suspect]
     Active Substance: FENTANYL
     Indication: PROCEDURAL PAIN
     Route: 062
     Dates: start: 2003
  3. CRESTOR [Concomitant]
     Active Substance: ROSUVASTATIN CALCIUM
     Indication: BLOOD CHOLESTEROL
     Route: 048
     Dates: start: 2003
  4. VITAMINS NOS [Concomitant]
     Active Substance: VITAMINS
     Route: 065
  5. FENANYL [Suspect]
     Active Substance: FENTANYL
     Indication: PROCEDURAL PAIN
     Route: 062

REACTIONS (4)
  - Wrong technique in drug usage process [Not Recovered/Not Resolved]
  - Product quality issue [Unknown]
  - Product outer packaging issue [Unknown]
  - Underdose [Recovered/Resolved]

NARRATIVE: CASE EVENT DATE: 2013
